FAERS Safety Report 7906182-9 (Version None)
Quarter: 2011Q4

REPORT INFORMATION
  Report Type: 
  Country: None (occurrence: None)
  Receive Date: 20111109
  Receipt Date: 20111109
  Transmission Date: 20120403
  Serious: No
  Sender: FDA-Public Use
  Company Number: None

PATIENT
  Age: 80 Year
  Sex: Female
  Weight: 92.9874 kg

DRUGS (1)
  1. CIPRO [Suspect]
     Indication: ANTIBIOTIC THERAPY
     Dosage: 1 PILL 1 TIMES A DAY MOUTH
     Route: 048
     Dates: start: 20111008, end: 20111011

REACTIONS (6)
  - BACK PAIN [None]
  - ASTHENIA [None]
  - NECK PAIN [None]
  - GAIT DISTURBANCE [None]
  - MYALGIA [None]
  - BONE PAIN [None]
